FAERS Safety Report 18241108 (Version 1)
Quarter: 2020Q3

REPORT INFORMATION
  Report Type: Spontaneous
  Country: US (occurrence: US)
  Receive Date: 20200904
  Receipt Date: 20200904
  Transmission Date: 20201103
  Serious: Yes (Death, Hospitalization)
  Sender: FDA-Public Use
  Company Number: None

PATIENT
  Age: 43 Year
  Sex: Female

DRUGS (1)
  1. OPSUMIT [Suspect]
     Active Substance: MACITENTAN
     Indication: PULMONARY ARTERIAL HYPERTENSION
     Route: 048
     Dates: start: 20200313, end: 20200826

REACTIONS (4)
  - Abdominal distension [None]
  - Large intestinal obstruction [None]
  - Pain [None]
  - Small intestinal obstruction [None]

NARRATIVE: CASE EVENT DATE: 20200826
